FAERS Safety Report 9723223 (Version 2)
Quarter: 2013Q4

REPORT INFORMATION
  Report Type: Spontaneous
  Country: US (occurrence: US)
  Receive Date: 20131202
  Receipt Date: 20131202
  Transmission Date: 20140711
  Serious: Yes (Disabling, Other)
  Sender: FDA-Public Use
  Company Number: US-GILEAD-2008-0016611

PATIENT
  Age: 41 Year
  Sex: Male

DRUGS (11)
  1. TRUVADA [Suspect]
     Indication: ACQUIRED IMMUNODEFICIENCY SYNDROME
     Route: 048
     Dates: start: 20080502, end: 20080508
  2. TRUVADA [Suspect]
     Route: 048
     Dates: start: 20080401, end: 20080502
  3. AMBISOME [Suspect]
     Route: 042
     Dates: start: 20080508
  4. AMBISOME [Suspect]
     Dates: start: 20080501, end: 20080505
  5. AMBISOME [Suspect]
     Route: 042
     Dates: start: 20080401, end: 20080417
  6. FLUCYTOSINE [Concomitant]
     Route: 048
     Dates: start: 20080401, end: 20080701
  7. ATAZANAVIR [Concomitant]
     Indication: ACQUIRED IMMUNODEFICIENCY SYNDROME
     Route: 048
     Dates: start: 20080401
  8. RITONAVIR [Concomitant]
     Indication: ACQUIRED IMMUNODEFICIENCY SYNDROME
     Route: 048
     Dates: start: 20080401
  9. AZITHROMYCIN [Concomitant]
     Route: 048
  10. DAPSONE [Concomitant]
     Route: 048
  11. VALGANCICLOVIR [Concomitant]
     Route: 048

REACTIONS (1)
  - Renal failure acute [Recovered/Resolved with Sequelae]
